FAERS Safety Report 17922915 (Version 1)
Quarter: 2020Q2

REPORT INFORMATION
  Report Type: Spontaneous
  Country: CH (occurrence: CH)
  Receive Date: 20200622
  Receipt Date: 20200622
  Transmission Date: 20200714
  Serious: Yes (Hospitalization)
  Sender: FDA-Public Use
  Company Number: CH-JNJFOC-20200623567

PATIENT
  Age: 87 Year
  Sex: Male

DRUGS (8)
  1. RIVAROXABAN [Suspect]
     Active Substance: RIVAROXABAN
     Dosage: 20 MG, QD
     Route: 048
     Dates: start: 20200505, end: 20200505
  2. CIPROFLOXACIN SPIRIG HC [Concomitant]
     Active Substance: CIPROFLOXACIN HYDROCHLORIDE
     Indication: CYSTITIS HAEMORRHAGIC
     Dosage: 500 MG, UNK
     Route: 048
     Dates: start: 20200425, end: 20200427
  3. CRESTOR [Concomitant]
     Active Substance: ROSUVASTATIN CALCIUM
     Dosage: 5 MG, UNK
     Route: 048
  4. TORASEMIDE [Concomitant]
     Active Substance: TORSEMIDE
     Dosage: 5 MG, UNK
     Route: 048
     Dates: end: 20200427
  5. DUODART [Concomitant]
     Active Substance: DUTASTERIDE\TAMSULOSIN
     Dosage: 1 DF, UNK
     Route: 048
  6. ELTROXIN [Concomitant]
     Active Substance: LEVOTHYROXINE
     Dosage: .1 MG, UNK
     Route: 048
  7. RIVAROXABAN [Suspect]
     Active Substance: RIVAROXABAN
     Indication: PRODUCT USED FOR UNKNOWN INDICATION
     Dosage: 20 MG, QD
     Route: 048
     Dates: end: 20200427
  8. PERINDOPRIL ARGININE [Concomitant]
     Active Substance: PERINDOPRIL ARGININE
     Dosage: 5 MG, UNK
     Route: 048

REACTIONS (3)
  - Asthenia [Recovered/Resolved]
  - Anaemia [Recovering/Resolving]
  - Haematuria [Recovered/Resolved]

NARRATIVE: CASE EVENT DATE: 20200425
